FAERS Safety Report 9745020 (Version 1)
Quarter: 2013Q4

REPORT INFORMATION
  Report Type: Spontaneous
  Country: CA (occurrence: CA)
  Receive Date: 20131211
  Receipt Date: 20131211
  Transmission Date: 20140711
  Serious: Yes (Hospitalization, Disabling, Other)
  Sender: FDA-Public Use
  Company Number: CA-ASTRAZENECA-2013SE89472

PATIENT
  Age: 72 Year
  Sex: Male

DRUGS (12)
  1. SEROQUEL [Suspect]
     Route: 048
  2. CLOZARIL [Suspect]
     Route: 065
  3. CLOZARIL [Suspect]
     Route: 065
  4. EXELON [Suspect]
     Route: 048
  5. CRESTOR [Concomitant]
     Route: 048
  6. METOPROLOL [Concomitant]
  7. ACETYLSALICYLIC ACID [Concomitant]
  8. CYANOCOBALAMIN [Concomitant]
  9. DOMPERIDONE [Concomitant]
  10. FOSAMAX [Concomitant]
  11. SODIUM CHLORIDE [Concomitant]
  12. STALEVO [Concomitant]

REACTIONS (3)
  - Balance disorder [Unknown]
  - Parkinson^s disease [Unknown]
  - Hypotension [Unknown]
